FAERS Safety Report 9448317 (Version 1)
Quarter: 2013Q3

REPORT INFORMATION
  Report Type: Report from Study
  Country: US (occurrence: US)
  Receive Date: 20130808
  Receipt Date: 20130808
  Transmission Date: 20140515
  Serious: Yes (Life-Threatening, Hospitalization)
  Sender: FDA-Public Use
  Company Number: US-ASTELLAS-2013US008329

PATIENT
  Age: 53 Year
  Sex: Female

DRUGS (4)
  1. ERLOTINIB TABLET [Suspect]
     Indication: NON-SMALL CELL LUNG CANCER
     Dosage: 150 MG, UID/QD
     Route: 048
     Dates: start: 20130718
  2. IMODIUM [Concomitant]
     Indication: DIARRHOEA
     Dosage: UNK
     Route: 048
     Dates: start: 20130718
  3. CLINDAMYCIN [Concomitant]
     Indication: RASH
     Dosage: UNK
     Route: 061
     Dates: start: 20130727
  4. DOXYCYCLINE [Concomitant]
     Indication: RASH GENERALISED
     Dosage: 100 MG, UID/QD
     Route: 048
     Dates: start: 20130724, end: 20130731

REACTIONS (6)
  - Swollen tongue [Unknown]
  - Pneumothorax [Recovering/Resolving]
  - Dyspnoea [Unknown]
  - Speech disorder [Unknown]
  - Diarrhoea [Recovered/Resolved]
  - Acne [Not Recovered/Not Resolved]
